FAERS Safety Report 20492233 (Version 2)
Quarter: 2022Q2

REPORT INFORMATION
  Report Type: Spontaneous
  Country: IN (occurrence: IN)
  Receive Date: 20220218
  Receipt Date: 20220427
  Transmission Date: 20220721
  Serious: Yes (Life-Threatening, Hospitalization)
  Sender: FDA-Public Use
  Company Number: IN-SEPTODONT-2022006751

PATIENT
  Age: 36 Year
  Sex: Male
  Weight: 84 kg

DRUGS (1)
  1. ARTICAINE HYDROCHLORIDE\EPINEPHRINE BITARTRATE [Suspect]
     Active Substance: ARTICAINE HYDROCHLORIDE\EPINEPHRINE BITARTRATE
     Indication: Product use in unapproved indication
     Dosage: 0.3 ML
     Route: 058
     Dates: start: 20220204, end: 20220204

REACTIONS (18)
  - Incorrect route of product administration [Not Recovered/Not Resolved]
  - Intentional product misuse [Not Recovered/Not Resolved]
  - Anaphylactic reaction [Unknown]
  - Hypersensitivity [Unknown]
  - Feeling abnormal [Unknown]
  - Oropharyngeal pain [Unknown]
  - Nausea [Unknown]
  - Dyspnoea [Unknown]
  - Dizziness [Unknown]
  - Pruritus [Recovered/Resolved]
  - Swelling face [Unknown]
  - Chills [Unknown]
  - Tachycardia [Unknown]
  - Hypertension [Unknown]
  - Somnolence [Unknown]
  - Chest discomfort [Unknown]
  - Throat tightness [Unknown]
  - Injection site reaction [Not Recovered/Not Resolved]

NARRATIVE: CASE EVENT DATE: 20220204
